FAERS Safety Report 4554161-4 (Version None)
Quarter: 2005Q1

REPORT INFORMATION
  Report Type: 
  Country: None (occurrence: None)
  Receive Date: 20050118
  Receipt Date: 20031002
  Transmission Date: 20050727
  Serious: Yes (Death, Hospitalization, Disabling)
  Sender: FDA-Public Use
  Company Number: US-MERCK-0310USA00338

PATIENT
  Age: 55 Year
  Sex: Male

DRUGS (5)
  1. VIOXX [Suspect]
     Indication: BACK PAIN
     Route: 048
     Dates: start: 20010613, end: 20010904
  2. VIOXX [Suspect]
     Route: 048
     Dates: start: 19990901
  3. FIORINAL [Concomitant]
     Route: 065
  4. [THERAPY UNSPECIFIED] [Concomitant]
     Route: 065
  5. NEURONTIN [Concomitant]
     Indication: PAIN
     Route: 048

REACTIONS (25)
  - AORTIC ATHEROSCLEROSIS [None]
  - ATHEROSCLEROSIS [None]
  - BLOOD CHOLESTEROL INCREASED [None]
  - CARDIAC ARREST [None]
  - CARDIO-RESPIRATORY ARREST [None]
  - CARDIOMEGALY [None]
  - CHEST PAIN [None]
  - CHOLELITHIASIS [None]
  - CIRCULATORY COLLAPSE [None]
  - COMA [None]
  - CORONARY ARTERY ATHEROSCLEROSIS [None]
  - CORONARY ARTERY STENOSIS [None]
  - DERMAL CYST [None]
  - DILATATION VENTRICULAR [None]
  - DYSPNOEA [None]
  - EMPHYSEMA [None]
  - HEART RATE INCREASED [None]
  - HEPATOMEGALY [None]
  - HYPERLIPIDAEMIA [None]
  - LOW DENSITY LIPOPROTEIN INCREASED [None]
  - MYOCARDIAL INFARCTION [None]
  - PULMONARY CONGESTION [None]
  - VENTRICULAR HYPERTROPHY [None]
  - VERY LOW DENSITY LIPOPROTEIN ABNORMAL [None]
  - VOMITING [None]
